FAERS Safety Report 5692482-2 (Version None)
Quarter: 2008Q2

REPORT INFORMATION
  Report Type: 
  Country: None (occurrence: None)
  Receive Date: 20080328
  Receipt Date: 20080207
  Transmission Date: 20081010
  Serious: Yes (Other)
  Sender: FDA-Public Use
  Company Number: US-WYE-H02518308

PATIENT
  Sex: Male

DRUGS (1)
  1. TORISEL [Suspect]
     Dosage: INTRAVENOUS
     Route: 042
     Dates: start: 20080101

REACTIONS (1)
  - PLATELET COUNT DECREASED [None]
